FAERS Safety Report 24013735 (Version 1)
Quarter: 2024Q2

REPORT INFORMATION
  Report Type: Spontaneous
  Country: AU (occurrence: AU)
  Receive Date: 20240626
  Receipt Date: 20240626
  Transmission Date: 20240716
  Serious: Yes (Hospitalization, Other)
  Sender: FDA-Public Use
  Company Number: AU-AMGEN-AUSSP2024123731

PATIENT
  Age: 45 Year
  Sex: Female

DRUGS (2)
  1. ADALIMUMAB [Suspect]
     Active Substance: ADALIMUMAB\ISOPROPYL ALCOHOL
     Indication: Takayasu^s arteritis
     Dosage: 40 MILLIGRAM
     Route: 058
  2. HUMIRA [Suspect]
     Active Substance: ADALIMUMAB
     Indication: Product used for unknown indication
     Route: 058

REACTIONS (6)
  - Takayasu^s arteritis [Unknown]
  - Condition aggravated [Unknown]
  - Angioplasty [Unknown]
  - Coronary artery bypass [Unknown]
  - Illness [Unknown]
  - Therapeutic product effect incomplete [Unknown]
